FAERS Safety Report 8247262-0 (Version None)
Quarter: 2012Q1

REPORT INFORMATION
  Report Type: 
  Country: None (occurrence: None)
  Receive Date: 20120316
  Receipt Date: 20091127
  Transmission Date: 20120608
  Serious: Yes (Other)
  Sender: FDA-Public Use
  Company Number: PHEH2009US17007

PATIENT
  Age: 41 Year
  Sex: Female

DRUGS (2)
  1. ANTIHYPERTENSIVE DRUGS (NO INGREDIENTS/SUBSTANCES) [Concomitant]
  2. TEKTURNA [Suspect]
     Indication: HYPERTENSION
     Dosage: 150 MG

REACTIONS (2)
  - HYPERTENSION [None]
  - HYPOTENSION [None]
